FAERS Safety Report 7186201-0 (Version None)
Quarter: 2010Q4

REPORT INFORMATION
  Report Type: 
  Country: None (occurrence: None)
  Receive Date: 20101222
  Receipt Date: 20100616
  Transmission Date: 20110411
  Serious: No
  Sender: FDA-Public Use
  Company Number: US-AMGEN-TCS415481

PATIENT

DRUGS (3)
  1. ENBREL [Suspect]
     Indication: RHEUMATOID ARTHRITIS
     Dosage: 50 MG, QWK
     Route: 058
     Dates: start: 20100416
  2. METHOTREXATE [Concomitant]
     Dosage: 10 MG, UNK
     Dates: start: 20100415, end: 20100512
  3. METHOTREXATE [Concomitant]
     Dosage: 15 MG, UNK
     Dates: start: 20100604

REACTIONS (5)
  - BRONCHITIS [None]
  - COUGH [None]
  - OROPHARYNGEAL PAIN [None]
  - PNEUMONIA [None]
  - RESPIRATORY TRACT CONGESTION [None]
